FAERS Safety Report 24115553 (Version 1)
Quarter: 2024Q3

REPORT INFORMATION
  Report Type: Spontaneous
  Country: US (occurrence: US)
  Receive Date: 20240721
  Receipt Date: 20240721
  Transmission Date: 20241017
  Serious: No
  Sender: NOVO NORDISK
  Company Number: US-NOVOPROD-1226023

PATIENT
  Sex: Female

DRUGS (1)
  1. WEGOVY [Suspect]
     Active Substance: SEMAGLUTIDE
     Indication: Type 1 diabetes mellitus
     Dosage: 1.7MG
     Route: 058

REACTIONS (4)
  - Injection site vesicles [Unknown]
  - Injection site pain [Unknown]
  - Product communication issue [Unknown]
  - Off label use [Unknown]
